FAERS Safety Report 4307836-6 (Version None)
Quarter: 2004Q1

REPORT INFORMATION
  Report Type: 
  Country: None (occurrence: None)
  Receive Date: 20040226
  Receipt Date: 20030108
  Transmission Date: 20041129
  Serious: No
  Sender: FDA-Public Use
  Company Number: 2003141184US

PATIENT
  Age: 60 Year
  Sex: Female

DRUGS (1)
  1. CELEBREX [Suspect]
     Dosage: ORAL
     Route: 048

REACTIONS (1)
  - RECTAL HAEMORRHAGE [None]
